FAERS Safety Report 25257167 (Version 1)
Quarter: 2025Q2

REPORT INFORMATION
  Report Type: Spontaneous
  Country: DE (occurrence: DE)
  Receive Date: 20250430
  Receipt Date: 20250430
  Transmission Date: 20250716
  Serious: Yes (Other)
  Sender: ABBVIE
  Company Number: DE-ABBVIE-6251788

PATIENT
  Age: 73 Year
  Sex: Male

DRUGS (5)
  1. VENETOCLAX [Suspect]
     Active Substance: VENETOCLAX
     Indication: Acute myeloid leukaemia
     Route: 048
  2. VENETOCLAX [Suspect]
     Active Substance: VENETOCLAX
     Indication: Acute myeloid leukaemia
     Route: 048
  3. VORICONAZOLE [Concomitant]
     Active Substance: VORICONAZOLE
     Indication: Product used for unknown indication
     Dosage: STRENGTH: 100 MG,
  4. DECITABINE [Concomitant]
     Active Substance: DECITABINE
     Indication: Acute myeloid leukaemia
  5. PIPERACILLIN SODIUM\TAZOBACTAM SODIUM [Concomitant]
     Active Substance: PIPERACILLIN SODIUM\TAZOBACTAM SODIUM
     Indication: Antifungal treatment

REACTIONS (11)
  - Hepatotoxicity [Recovered/Resolved]
  - Pyrexia [Not Recovered/Not Resolved]
  - Acute myeloid leukaemia recurrent [Unknown]
  - Lung infiltration [Recovered/Resolved]
  - Infection [Unknown]
  - Bronchopulmonary aspergillosis [Unknown]
  - Pancytopenia [Unknown]
  - Abdominal discomfort [Unknown]
  - Nausea [Unknown]
  - Acute graft versus host disease in skin [Unknown]
  - Acute graft versus host disease in intestine [Unknown]

NARRATIVE: CASE EVENT DATE: 20240501
